FAERS Safety Report 7339742-7 (Version None)
Quarter: 2011Q1

REPORT INFORMATION
  Report Type: 
  Country: None (occurrence: None)
  Receive Date: 20110309
  Receipt Date: 20110214
  Transmission Date: 20110831
  Serious: Yes (Other)
  Sender: FDA-Public Use
  Company Number: US-BAYER-200938849NA

PATIENT
  Sex: Female

DRUGS (1)
  1. YAZ [Suspect]
     Dates: start: 20070801, end: 20090501

REACTIONS (3)
  - NEPHROLITHIASIS [None]
  - CHOLECYSTITIS CHRONIC [None]
  - PANCREATITIS [None]
